FAERS Safety Report 9516877 (Version 1)
Quarter: 2013Q3

REPORT INFORMATION
  Report Type: Spontaneous
  Country: US (occurrence: US)
  Receive Date: 20130911
  Receipt Date: 20130911
  Transmission Date: 20140515
  Serious: Yes (Hospitalization)
  Sender: FDA-Public Use
  Company Number: US-BRISTOL-MYERS SQUIBB COMPANY-19227685

PATIENT
  Sex: Male

DRUGS (3)
  1. ABILIFY [Suspect]
     Indication: SCHIZOPHRENIA
  2. LAMICTAL [Suspect]
  3. COGENTIN [Suspect]
     Dosage: DOSE REDUCED FROM 20MG TO 15MG

REACTIONS (2)
  - Cognitive disorder [Unknown]
  - Muscle rigidity [Unknown]
